APPROVED DRUG PRODUCT: ROPIVACAINE HYDROCHLORIDE
Active Ingredient: ROPIVACAINE HYDROCHLORIDE
Strength: 40MG/20ML (2MG/ML)
Dosage Form/Route: SOLUTION;INJECTION
Application: A218713 | Product #002 | TE Code: AP
Applicant: KINDOS PHARMACEUTICALS CO LTD
Approved: Jul 30, 2024 | RLD: No | RS: No | Type: RX